FAERS Safety Report 15576449 (Version 1)
Quarter: 2018Q4

REPORT INFORMATION
  Report Type: Spontaneous
  Country: US (occurrence: US)
  Receive Date: 20181101
  Receipt Date: 20181101
  Transmission Date: 20190205
  Serious: No
  Sender: FDA-Public Use
  Company Number: US-TEVA-2018-US-969462

PATIENT
  Sex: Female

DRUGS (1)
  1. MINOCCAP-A [Suspect]
     Active Substance: MINOCYCLINE\MINOCYCLINE HYDROCHLORIDE
     Indication: ACNE
     Route: 065
     Dates: start: 20181020

REACTIONS (1)
  - Acne [Unknown]

NARRATIVE: CASE EVENT DATE: 20181020
